FAERS Safety Report 15669764 (Version 1)
Quarter: 2018Q4

REPORT INFORMATION
  Report Type: Report from Study
  Country: CA (occurrence: CA)
  Receive Date: 20181129
  Receipt Date: 20181129
  Transmission Date: 20190205
  Serious: Yes (Other)
  Sender: FDA-Public Use
  Company Number: CA-GLAXOSMITHKLINE-CA2018GSK162186

PATIENT
  Age: 64 Year
  Sex: Female

DRUGS (4)
  1. MEPOLIZUMAB [Suspect]
     Active Substance: MEPOLIZUMAB
     Dosage: 100 MG, Z(MONTHLY)
     Route: 042
  2. SYMBICORT [Suspect]
     Active Substance: BUDESONIDE\FORMOTEROL FUMARATE DIHYDRATE
     Indication: PRODUCT USED FOR UNKNOWN INDICATION
     Dosage: 2 PUFF(S), BID
  3. T3 (LIOTHYRONINE) [Concomitant]
     Indication: PRODUCT USED FOR UNKNOWN INDICATION
     Dosage: 2 DF, BID, TABLET
     Route: 048
  4. MEPOLIZUMAB [Suspect]
     Active Substance: MEPOLIZUMAB
     Indication: PRODUCT USED FOR UNKNOWN INDICATION
     Dosage: 100 MG, Z(MONTHLY)
     Route: 042

REACTIONS (6)
  - Oropharyngeal pain [Recovering/Resolving]
  - Wheezing [Recovering/Resolving]
  - Lumbar vertebral fracture [Unknown]
  - Cough [Recovering/Resolving]
  - Fall [Unknown]
  - Viral infection [Recovering/Resolving]

NARRATIVE: CASE EVENT DATE: 20180715
